FAERS Safety Report 10638688 (Version 1)
Quarter: 2014Q4

REPORT INFORMATION
  Report Type: Spontaneous
  Country: US (occurrence: None)
  Receive Date: 20141205
  Receipt Date: 20141205
  Transmission Date: 20150529
  Serious: No
  Sender: FDA-Public Use
  Company Number: None

PATIENT
  Sex: Male

DRUGS (7)
  1. BISACODYL. [Concomitant]
     Active Substance: BISACODYL
  2. IBUPROFEN. [Concomitant]
     Active Substance: IBUPROFEN
  3. REVLIMID [Suspect]
     Active Substance: LENALIDOMIDE
     Indication: PLASMA CELL MYELOMA
     Dosage: 25 MG, DAILY X21D/28D, ORALLY
     Route: 048
     Dates: start: 201408
  4. DEXAMETHASONE. [Concomitant]
     Active Substance: DEXAMETHASONE
  5. MULTIVITAMIN [Concomitant]
     Active Substance: VITAMINS
  6. ASA [Concomitant]
     Active Substance: ASPIRIN
  7. CALCIUM CITRATE [Concomitant]
     Active Substance: CALCIUM CITRATE

REACTIONS (1)
  - Dysgeusia [None]
